FAERS Safety Report 17269967 (Version 2)
Quarter: 2020Q1

REPORT INFORMATION
  Report Type: Spontaneous
  Country: JP (occurrence: JP)
  Receive Date: 20200114
  Receipt Date: 20200213
  Transmission Date: 20200409
  Serious: Yes (Life-Threatening)
  Sender: FDA-Public Use
  Company Number: JP-CELGENEUS-JPN-20191203151

PATIENT
  Age: 71 Year
  Sex: Male
  Weight: 49.7 kg

DRUGS (4)
  1. CYRAMZA [Suspect]
     Active Substance: RAMUCIRUMAB
     Indication: GASTRIC CANCER
     Dosage: 400 MILLIGRAM
     Route: 041
     Dates: start: 20191003, end: 20191010
  2. ABRAXANE [Suspect]
     Active Substance: PACLITAXEL
     Indication: GASTRIC CANCER
     Dosage: 150 MILLIGRAM
     Route: 041
     Dates: start: 20191003, end: 20191010
  3. CYRAMZA [Suspect]
     Active Substance: RAMUCIRUMAB
     Dosage: 250 MILLIGRAM
     Route: 041
     Dates: start: 20191107
  4. ABRAXANE [Suspect]
     Active Substance: PACLITAXEL
     Dosage: 90 MILLIGRAM
     Route: 041
     Dates: start: 20191107

REACTIONS (2)
  - Hypoaesthesia [Unknown]
  - Febrile neutropenia [Recovered/Resolved]

NARRATIVE: CASE EVENT DATE: 201910
